FAERS Safety Report 4887786-7 (Version None)
Quarter: 2006Q1

REPORT INFORMATION
  Report Type: 
  Country: None (occurrence: None)
  Receive Date: 20060123
  Receipt Date: 20051103
  Transmission Date: 20060701
  Serious: Yes (Life-Threatening, Hospitalization, Disabling)
  Sender: FDA-Public Use
  Company Number: US-ROCHE-423763

PATIENT
  Age: 13 Year
  Sex: Male
  Weight: 77.2 kg

DRUGS (5)
  1. CYTOVENE IV [Suspect]
     Indication: CYTOMEGALOVIRUS INFECTION
     Dosage: FREQUENCY REPORTED AS: Q 48 HR.
     Route: 042
     Dates: start: 20051017, end: 20051105
  2. FENTANYL [Concomitant]
     Indication: PAIN
     Dosage: REPORTED AS FENTANYL PCA. FORMULATION REPORTED AS: VARIOUS. DOSAGE REGIMEN REPORTED AS PCA.
     Route: 042
     Dates: start: 20051013, end: 20051016
  3. EPOGEN [Concomitant]
     Indication: ANAEMIA
     Dosage: STOP DATE GIVEN AS 02 NOV 2005 BUT ALSO REPORTED AS ONGOING. ADMINISTERED WITH DIALYSIS.
     Route: 042
     Dates: start: 20051021
  4. POLYGAM [Concomitant]
     Dosage: FREQUENCY REPORTED AS Q 48 HR.
     Route: 042
     Dates: start: 20051017, end: 20051019
  5. THYMOGLOBULIN [Concomitant]
     Dosage: FREQUENCY REPORTED AS Q 24 HR.
     Route: 042
     Dates: start: 20051015, end: 20051028

REACTIONS (8)
  - COMPLICATIONS OF TRANSPLANTED KIDNEY [None]
  - HAEMODIALYSIS [None]
  - HAEMOGLOBIN DECREASED [None]
  - KIDNEY TRANSPLANT REJECTION [None]
  - PLATELET COUNT DECREASED [None]
  - RENAL TUBULAR NECROSIS [None]
  - TUBULOINTERSTITIAL NEPHRITIS [None]
  - WHITE BLOOD CELL COUNT DECREASED [None]
